FAERS Safety Report 9521178 (Version 2)
Quarter: 2014Q1

REPORT INFORMATION
  Report Type: Spontaneous
  Country: US (occurrence: None)
  Receive Date: 20130305
  Receipt Date: 20140306
  Transmission Date: 20141002
  Serious: Yes (Other)
  Sender: FDA-Public Use
  Company Number: 163-21880-12062967

PATIENT
  Age: 69 Year
  Sex: Female
  Weight: 102.2 kg

DRUGS (2)
  1. REVLIMID [Suspect]
     Indication: PLASMA CELL MYELOMA
     Dosage: , 21 IN 28 D, PO
     Route: 048
     Dates: start: 20101230
  2. LASIX (FUROSEMIDE) (UNKNOWN) [Concomitant]

REACTIONS (7)
  - Haemorrhage subcutaneous [None]
  - Alopecia [None]
  - Skin ulcer [None]
  - Fatigue [None]
  - Local swelling [None]
  - Drug dose omission [None]
  - Immunodeficiency [None]
